FAERS Safety Report 9156242 (Version 1)
Quarter: 2013Q1

REPORT INFORMATION
  Report Type: Spontaneous
  Country: US (occurrence: US)
  Receive Date: 20130211
  Receipt Date: 20130211
  Transmission Date: 20140127
  Serious: Yes (Hospitalization, Other)
  Sender: FDA-Public Use
  Company Number: US-RB-049506-13

PATIENT
  Age: 21 Year
  Sex: Male

DRUGS (1)
  1. DELSYM ADULT ORANGE [Suspect]
     Indication: DRUG ABUSE
     Dosage: 1/2 OF A 5 OUNCE BOTTLE EVERY DAY
     Route: 048

REACTIONS (4)
  - Drug abuse [Not Recovered/Not Resolved]
  - Dysuria [Not Recovered/Not Resolved]
  - Renal disorder [Not Recovered/Not Resolved]
  - Euphoric mood [Not Recovered/Not Resolved]
